FAERS Safety Report 9278414 (Version 1)
Quarter: 2013Q2

REPORT INFORMATION
  Report Type: Spontaneous
  Country: US (occurrence: None)
  Receive Date: 20130506
  Receipt Date: 20130506
  Transmission Date: 20140414
  Serious: Yes (Other)
  Sender: FDA-Public Use
  Company Number: None

PATIENT
  Age: 18 Year
  Sex: Male
  Weight: 76.2 kg

DRUGS (1)
  1. ALDEX CT [Suspect]
     Indication: NASOPHARYNGITIS
     Dates: start: 20120829, end: 20120829

REACTIONS (3)
  - Hallucination, visual [None]
  - Crying [None]
  - Incoherent [None]
